FAERS Safety Report 8796779 (Version 1)
Quarter: 2012Q4

REPORT INFORMATION
  Report Type: 
  Country: DE (occurrence: FR)
  Receive Date: 20120917
  Receipt Date: 20120917
  Transmission Date: 20130627
  Serious: Yes (Life-Threatening)
  Sender: FDA-Public Use
  Company Number: FR-BRISTOL-MYERS SQUIBB COMPANY-16955759

PATIENT
  Age: 72 Year
  Sex: Female

DRUGS (3)
  1. ERBITUX SOLN FOR INF [Suspect]
     Indication: RECTOSIGMOID CANCER
     Route: 042
     Dates: start: 20120105, end: 20120619
  2. IRINOTECAN HCL [Suspect]
     Indication: RECTOSIGMOID CANCER
     Dosage: Formulation-Irinotecan sol for inj
     Route: 042
     Dates: start: 20120105
  3. FLUOROURACIL [Suspect]
     Indication: RECTOSIGMOID CANCER
     Dosage: Formulation-Fluorouracil sol for inj
     Route: 042
     Dates: start: 20120105, end: 20120619

REACTIONS (1)
  - Small intestinal obstruction [Recovered/Resolved with Sequelae]
